FAERS Safety Report 8922224 (Version 2)
Quarter: 2012Q4

REPORT INFORMATION
  Report Type: Report from Study
  Country: NL (occurrence: NL)
  Receive Date: 20121123
  Receipt Date: 20121212
  Transmission Date: 20130627
  Serious: Yes (Hospitalization, Other)
  Sender: FDA-Public Use
  Company Number: BE-SANOFI-AVENTIS-2012SA084367

PATIENT
  Age: 40 Year
  Sex: Female

DRUGS (3)
  1. DOCETAXEL [Suspect]
     Indication: BREAST CANCER
     Route: 042
     Dates: start: 20090316, end: 20090629
  2. FEMARA [Suspect]
     Indication: BREAST CANCER
     Route: 048
     Dates: start: 20090729, end: 20110712
  3. XELODA [Suspect]
     Indication: BREAST CANCER
     Dosage: freq.: 14 in 21 days
     Route: 048
     Dates: start: 20090316, end: 20090712

REACTIONS (1)
  - Chondrosarcoma [Recovered/Resolved]
